FAERS Safety Report 7610404-1 (Version None)
Quarter: 2011Q3

REPORT INFORMATION
  Report Type: 
  Country: None (occurrence: None)
  Receive Date: 20110715
  Receipt Date: 20110707
  Transmission Date: 20111222
  Serious: No
  Sender: FDA-Public Use
  Company Number: US-PFIZER INC-2011153214

PATIENT
  Sex: Female
  Weight: 81.633 kg

DRUGS (5)
  1. PRISTIQ [Suspect]
     Indication: DEPRESSION
     Dosage: 50 MG, DAILY
     Route: 048
     Dates: start: 20110501, end: 20110601
  2. PRISTIQ [Suspect]
     Dosage: 50 MG ONCE IN THREE DAYS
     Route: 048
     Dates: start: 20110704
  3. ZOLOFT [Suspect]
     Indication: DEPRESSION
     Dosage: UNK
     Route: 048
     Dates: start: 19920101, end: 19950101
  4. ZOLOFT [Suspect]
     Dosage: 50 MG DAILY
     Route: 048
     Dates: start: 20040101, end: 20110101
  5. PRISTIQ [Suspect]
     Dosage: 50 MG ONCE IN TWO DAYS
     Route: 048
     Dates: start: 20110601, end: 20110701

REACTIONS (11)
  - ABDOMINAL DISTENSION [None]
  - DIZZINESS [None]
  - DRY MOUTH [None]
  - DIARRHOEA [None]
  - ENERGY INCREASED [None]
  - MALAISE [None]
  - NERVOUSNESS [None]
  - WEIGHT INCREASED [None]
  - ABDOMINAL PAIN UPPER [None]
  - NAUSEA [None]
  - ASTHENIA [None]
